FAERS Safety Report 8329032-8 (Version None)
Quarter: 2012Q2

REPORT INFORMATION
  Report Type: 
  Country: None (occurrence: None)
  Receive Date: 20120502
  Receipt Date: 20120427
  Transmission Date: 20120825
  Serious: Yes (Life-Threatening)
  Sender: FDA-Public Use
  Company Number: GB-ASTRAZENECA-2012SE27582

PATIENT
  Age: 54 Year
  Sex: Male
  Weight: 128.1 kg

DRUGS (9)
  1. AMLODIPINE [Suspect]
     Route: 048
  2. LITHIUM CARBONATE [Suspect]
     Route: 048
  3. SENNA [Suspect]
     Route: 048
  4. AMLODIPINE [Suspect]
     Route: 048
  5. DABIGATRAN ETEXILATE [Suspect]
     Indication: THROMBOSIS PROPHYLAXIS
     Route: 048
     Dates: start: 20120327, end: 20120422
  6. ACETAMINOPHEN [Suspect]
     Route: 048
  7. DESLORATADINE [Suspect]
     Route: 048
  8. CODEINE [Suspect]
     Route: 048
  9. QUETIAPINE [Suspect]
     Route: 048

REACTIONS (1)
  - DEEP VEIN THROMBOSIS [None]
